FAERS Safety Report 10154071 (Version 1)
Quarter: 2014Q2

REPORT INFORMATION
  Report Type: Spontaneous
  Country: US (occurrence: US)
  Receive Date: 20140506
  Receipt Date: 20140506
  Transmission Date: 20141212
  Serious: Yes (Death)
  Sender: FDA-Public Use
  Company Number: US-ROCHE-1392900

PATIENT
  Sex: 0

DRUGS (2)
  1. HERCEPTIN [Suspect]
     Indication: PRODUCT USED FOR UNKNOWN INDICATION
     Route: 050
     Dates: start: 20111128
  2. HERCEPTIN [Suspect]
     Route: 064
     Dates: end: 20130708

REACTIONS (3)
  - Foetal death [Fatal]
  - Foetal malformation [Fatal]
  - Foetal exposure during pregnancy [Unknown]
